FAERS Safety Report 9223178 (Version 2)
Quarter: 2013Q2

REPORT INFORMATION
  Report Type: Spontaneous
  Country: TR (occurrence: TR)
  Receive Date: 20130410
  Receipt Date: 20130521
  Transmission Date: 20140414
  Serious: Yes (Other)
  Sender: FDA-Public Use
  Company Number: TR-ROCHE-1210917

PATIENT
  Age: 67 Year
  Sex: Male

DRUGS (4)
  1. ACTILYSE [Suspect]
     Indication: ISCHAEMIC STROKE
     Route: 042
  2. WARFARIN [Suspect]
     Indication: PRODUCT USED FOR UNKNOWN INDICATION
     Route: 065
  3. ASPIRIN [Concomitant]
  4. CLOPIDOGREL [Concomitant]

REACTIONS (4)
  - Cerebral microhaemorrhage [Unknown]
  - Subarachnoid haemorrhage [Unknown]
  - Haematuria [Recovered/Resolved]
  - Atrial fibrillation [Unknown]
